FAERS Safety Report 25938992 (Version 1)
Quarter: 2025Q4

REPORT INFORMATION
  Report Type: Spontaneous
  Country: CA (occurrence: CA)
  Receive Date: 20251019
  Receipt Date: 20251019
  Transmission Date: 20260118
  Serious: Yes (Death)
  Sender: HLS THERAPEUTICS
  Company Number: CA-HLS-202502751

PATIENT
  Age: 29 Year
  Sex: Male

DRUGS (4)
  1. ARIPIPRAZOLE [Concomitant]
     Active Substance: ARIPIPRAZOLE
     Dosage: 1 EVERY 1 DAYS?AMOUNT: 10 MILLIGRAM?NOT SPECIFIED DOSAGE FORM
     Route: 065
  2. CLOZAPINE [Suspect]
     Active Substance: CLOZAPINE
     Indication: Schizoaffective disorder
     Dosage: 1 EVERY 1 DAYS?AMOUNT: 350 MILLIGRAM?TABLETS DOSAGE FORM
     Route: 065
  3. PANTOPRAZOLE [Concomitant]
     Active Substance: PANTOPRAZOLE
     Dosage: 2 EVERY 1 DAYS
     Route: 065
  4. DIVALPROEX SODIUM [Concomitant]
     Active Substance: DIVALPROEX SODIUM
     Dosage: 1 EVERY 1 DAYS?AMOUNT: 1000 MILLIGRAM
     Route: 065

REACTIONS (1)
  - Death [Fatal]
